FAERS Safety Report 9251290 (Version 2)
Quarter: 2013Q3

REPORT INFORMATION
  Report Type: Spontaneous
  Country: US (occurrence: US)
  Receive Date: 20130424
  Receipt Date: 20130807
  Transmission Date: 20140515
  Serious: Yes (Hospitalization, Disabling, Other)
  Sender: FDA-Public Use
  Company Number: US-ASTRAZENECA-2013SE27592

PATIENT
  Age: 55 Year
  Sex: Female

DRUGS (28)
  1. NEXIUM [Suspect]
     Indication: GASTROOESOPHAGEAL REFLUX DISEASE
     Route: 048
  2. NEXIUM [Suspect]
     Indication: GASTROOESOPHAGEAL REFLUX DISEASE
     Route: 048
  3. NEXIUM [Suspect]
     Indication: ABDOMINAL DISCOMFORT
     Route: 048
  4. NEXIUM [Suspect]
     Indication: GASTROOESOPHAGEAL REFLUX DISEASE
     Route: 048
  5. NEXIUM [Suspect]
     Indication: GASTROOESOPHAGEAL REFLUX DISEASE
     Route: 048
  6. NEXIUM [Suspect]
     Indication: ABDOMINAL DISCOMFORT
     Route: 048
  7. NEXIUM [Suspect]
     Indication: GASTROOESOPHAGEAL REFLUX DISEASE
     Dosage: 2-3 TIMES A DAY
     Route: 048
     Dates: start: 20080620
  8. NEXIUM [Suspect]
     Indication: GASTROOESOPHAGEAL REFLUX DISEASE
     Dosage: 2-3 TIMES A DAY
     Route: 048
     Dates: start: 20080620
  9. NEXIUM [Suspect]
     Indication: ABDOMINAL DISCOMFORT
     Dosage: 2-3 TIMES A DAY
     Route: 048
     Dates: start: 20080620
  10. NEXIUM [Suspect]
     Indication: GASTROOESOPHAGEAL REFLUX DISEASE
     Route: 048
     Dates: start: 20080602
  11. NEXIUM [Suspect]
     Indication: GASTROOESOPHAGEAL REFLUX DISEASE
     Route: 048
     Dates: start: 20080602
  12. NEXIUM [Suspect]
     Indication: ABDOMINAL DISCOMFORT
     Route: 048
     Dates: start: 20080602
  13. PRILOSEC [Suspect]
     Indication: ABDOMINAL DISCOMFORT
     Route: 048
  14. PRILOSEC [Suspect]
     Indication: ABDOMINAL DISCOMFORT
     Route: 048
     Dates: start: 2004
  15. PRILOSEC [Suspect]
     Indication: ABDOMINAL DISCOMFORT
     Route: 048
     Dates: start: 20040921
  16. PROTONIX/ PROTONIX [Concomitant]
  17. ZANTAC/ RANITIDINE [Concomitant]
     Dates: start: 20000912
  18. TUMS [Concomitant]
     Dates: start: 2000
  19. PROZAC [Concomitant]
  20. ALBUTEROL [Concomitant]
  21. HYDROCHLOROTHIAZIDE [Concomitant]
  22. COZAR [Concomitant]
     Indication: BLOOD PRESSURE
     Dates: start: 20060626
  23. PREDNISONE [Concomitant]
     Dates: start: 19990828
  24. CYCLOBENZAPRINE [Concomitant]
     Dates: start: 20010522
  25. LORATADINE [Concomitant]
     Dates: start: 20030929
  26. SINGULAIR [Concomitant]
  27. ESTRADIOL [Concomitant]
     Dates: start: 20050812
  28. MEDROXYPROGESTERONE [Concomitant]
     Dates: start: 20050812

REACTIONS (11)
  - Accident at work [Unknown]
  - Ankle fracture [Unknown]
  - Fibula fracture [Unknown]
  - Fall [Unknown]
  - Tibia fracture [Unknown]
  - Osteoporosis [Unknown]
  - Bone disorder [Unknown]
  - Panic attack [Unknown]
  - Depression [Unknown]
  - Lung disorder [Unknown]
  - Anxiety disorder [Unknown]
